FAERS Safety Report 21904482 (Version 1)
Quarter: 2023Q1

REPORT INFORMATION
  Report Type: Spontaneous
  Country: US (occurrence: US)
  Receive Date: 20230124
  Receipt Date: 20230124
  Transmission Date: 20230417
  Serious: No
  Sender: FDA-Public Use
  Company Number: US-GALDERMA-US2023000210

PATIENT

DRUGS (3)
  1. PROACTIV MD ADAPALENE ACNE TREATMENT [Suspect]
     Active Substance: ADAPALENE
     Indication: Acne
     Dosage: 1 DOSAGE FORM, QD
     Route: 061
     Dates: start: 202212, end: 202212
  2. Proactiv MD Ultra Gentle Cleanser [Concomitant]
     Indication: Acne
     Dosage: 1 DOSAGE FORM, BID
     Route: 061
     Dates: start: 202212, end: 202212
  3. Proactiv MD Ultra Hydrating Moisturizer [Concomitant]
     Indication: Acne
     Dosage: 1 DOSAGE FORM, BID
     Route: 061
     Dates: start: 202212, end: 202212

REACTIONS (7)
  - Hypersensitivity [Recovering/Resolving]
  - Erythema of eyelid [Recovering/Resolving]
  - Swelling of eyelid [Recovering/Resolving]
  - Rash macular [Recovering/Resolving]
  - Erythema [Recovering/Resolving]
  - Periorbital swelling [Recovering/Resolving]
  - Product use issue [Recovered/Resolved]

NARRATIVE: CASE EVENT DATE: 20221201
